FAERS Safety Report 9666776 (Version 1)
Quarter: 2013Q4

REPORT INFORMATION
  Report Type: Spontaneous
  Country: US (occurrence: US)
  Receive Date: 20131104
  Receipt Date: 20131104
  Transmission Date: 20140711
  Serious: No
  Sender: FDA-Public Use
  Company Number: US-BIOGENIDEC-2013BI087752

PATIENT
  Age: 51 Year
  Sex: Female

DRUGS (10)
  1. TECFIDERA [Suspect]
     Indication: MULTIPLE SCLEROSIS
     Route: 048
     Dates: start: 20130821
  2. BACLOFEN [Concomitant]
  3. COUMADIN [Concomitant]
  4. ZOLOFT [Concomitant]
  5. KLONOPIN [Concomitant]
  6. AMANTADINE [Concomitant]
  7. ULTRAM [Concomitant]
  8. HYDROCODONE -APAP [Concomitant]
  9. SERTRALINE [Concomitant]
  10. TYLENOL PM [Concomitant]

REACTIONS (1)
  - Pruritus [Not Recovered/Not Resolved]
